FAERS Safety Report 25602538 (Version 4)
Quarter: 2025Q4

REPORT INFORMATION
  Report Type: Report from Study
  Country: US (occurrence: US)
  Receive Date: 20250724
  Receipt Date: 20251210
  Transmission Date: 20260118
  Serious: Yes (Other)
  Sender: PFIZER
  Company Number: US-PFIZER INC-202500109426

PATIENT
  Age: 69 Year
  Sex: Female

DRUGS (8)
  1. LORBRENA [Interacting]
     Active Substance: LORLATINIB
     Indication: Lung neoplasm malignant
     Dosage: 100 MG, DAILY
     Route: 048
     Dates: start: 20250411
  2. LORBRENA [Interacting]
     Active Substance: LORLATINIB
     Dosage: 100 MG, ONCE DAILY
     Dates: start: 20250414
  3. LORBRENA [Interacting]
     Active Substance: LORLATINIB
     Dosage: 100 MG, 1X/DAY
     Dates: start: 20250415
  4. LORBRENA [Interacting]
     Active Substance: LORLATINIB
     Dosage: 25 MG, 3 TABLETS, ONCE DAILY
     Route: 048
     Dates: start: 20251115
  5. ATORVASTATIN [Concomitant]
     Active Substance: ATORVASTATIN
     Dosage: UNK
  6. LEVOTHYROXINE [Concomitant]
     Active Substance: LEVOTHYROXINE
     Dosage: UNK
  7. VITAMIN D3 [Concomitant]
     Active Substance: CHOLECALCIFEROL
     Dosage: UNK
  8. VITAMIN C [Concomitant]
     Active Substance: ASCORBIC ACID
     Dosage: UNK

REACTIONS (15)
  - Drug interaction [Recovered/Resolved]
  - Hallucination [Recovered/Resolved]
  - Brain fog [Not Recovered/Not Resolved]
  - Hypersomnia [Not Recovered/Not Resolved]
  - Nervousness [Unknown]
  - Feeling abnormal [Unknown]
  - Visual impairment [Unknown]
  - Dizziness [Not Recovered/Not Resolved]
  - Confusional state [Not Recovered/Not Resolved]
  - Hyperhidrosis [Recovered/Resolved]
  - Memory impairment [Unknown]
  - Alopecia [Not Recovered/Not Resolved]
  - Weight decreased [Unknown]
  - Decreased appetite [Unknown]
  - Product dose omission issue [Unknown]

NARRATIVE: CASE EVENT DATE: 20250101
